FAERS Safety Report 8731979 (Version 2)
Quarter: 2013Q4

REPORT INFORMATION
  Report Type: Spontaneous
  Country: US (occurrence: US)
  Receive Date: 20120820
  Receipt Date: 20131101
  Transmission Date: 20140711
  Serious: No
  Sender: FDA-Public Use
  Company Number: US-009507513-1208USA000263

PATIENT
  Sex: Female

DRUGS (4)
  1. MIRALAX [Suspect]
     Indication: PRODUCT USED FOR UNKNOWN INDICATION
     Dosage: 17 G, ONCE
     Route: 048
     Dates: start: 20120606
  2. MIRALAX [Suspect]
     Indication: MEDICAL OBSERVATION
     Dosage: 34 G, ONCE
     Route: 048
     Dates: start: 20120607
  3. BENTYL [Concomitant]
     Indication: ABDOMINAL PAIN
     Dosage: UNK, UNKNOWN
  4. BENTYL [Concomitant]
     Indication: IRRITABLE BOWEL SYNDROME

REACTIONS (2)
  - Diarrhoea [Not Recovered/Not Resolved]
  - Overdose [Unknown]
